FAERS Safety Report 5277339-3 (Version None)
Quarter: 2007Q1

REPORT INFORMATION
  Report Type: 
  Country: None (occurrence: None)
  Receive Date: 20061213
  Receipt Date: 20051111
  Transmission Date: 20070707
  Serious: No
  Sender: FDA-Public Use
  Company Number: 2005AC01822

PATIENT
  Age: 68 Year
  Sex: Female

DRUGS (18)
  1. QUETIAPINE FUMARATE [Suspect]
     Indication: AGITATION
     Dosage: 100 MG DAILY PO
     Route: 048
  2. QUETIAPINE FUMARATE [Suspect]
     Indication: DEPRESSED MOOD
     Dosage: 100 MG DAILY PO
     Route: 048
  3. QUETIAPINE FUMARATE [Suspect]
     Indication: INSOMNIA
     Dosage: 100 MG DAILY PO
     Route: 048
  4. QUETIAPINE FUMARATE [Suspect]
     Indication: AGITATION
     Dosage: 150 MG DAILY PO
     Route: 047
  5. QUETIAPINE FUMARATE [Suspect]
     Indication: DEPRESSED MOOD
     Dosage: 150 MG DAILY PO
     Route: 047
  6. QUETIAPINE FUMARATE [Suspect]
     Indication: INSOMNIA
     Dosage: 150 MG DAILY PO
     Route: 047
  7. QUETIAPINE FUMARATE [Suspect]
     Indication: AGITATION
     Dosage: 200 MG DAILY PO
     Route: 048
  8. QUETIAPINE FUMARATE [Suspect]
     Indication: DEPRESSED MOOD
     Dosage: 200 MG DAILY PO
     Route: 048
  9. QUETIAPINE FUMARATE [Suspect]
     Indication: INSOMNIA
     Dosage: 200 MG DAILY PO
     Route: 048
  10. QUETIAPINE FUMARATE [Suspect]
     Indication: AGITATION
     Dosage: 150 MG DAILY PO
     Route: 048
  11. QUETIAPINE FUMARATE [Suspect]
     Indication: DEPRESSED MOOD
     Dosage: 150 MG DAILY PO
     Route: 048
  12. QUETIAPINE FUMARATE [Suspect]
     Indication: INSOMNIA
     Dosage: 150 MG DAILY PO
     Route: 048
  13. QUETIAPINE FUMARATE [Suspect]
     Indication: AGITATION
     Dosage: 200 MG DAILY PO
     Route: 048
  14. QUETIAPINE FUMARATE [Suspect]
     Indication: DEPRESSED MOOD
     Dosage: 200 MG DAILY PO
     Route: 048
  15. QUETIAPINE FUMARATE [Suspect]
     Indication: INSOMNIA
     Dosage: 200 MG DAILY PO
     Route: 048
  16. QUETIAPINE FUMARATE [Suspect]
     Dosage: 150 MG DAILY PO
     Route: 048
  17. FERRITIN [Concomitant]
  18. LITHIUM CARBONATE [Concomitant]

REACTIONS (1)
  - RESTLESS LEGS SYNDROME [None]
